FAERS Safety Report 26156943 (Version 1)
Quarter: 2025Q4

REPORT INFORMATION
  Report Type: Spontaneous
  Country: US (occurrence: US)
  Receive Date: 20251215
  Receipt Date: 20251215
  Transmission Date: 20260118
  Serious: No
  Sender: LUPIN
  Company Number: US-LUPIN PHARMACEUTICALS INC.-2025-11142

PATIENT
  Age: 66 Year
  Weight: 72.562 kg

DRUGS (1)
  1. BROMFENAC [Suspect]
     Active Substance: BROMFENAC
     Indication: Glaucoma
     Dosage: 3 DROP, Q8H

REACTIONS (4)
  - Product packaging quantity issue [Unknown]
  - Product packaging difficult to open [Unknown]
  - Product dose omission issue [Unknown]
  - No adverse event [Unknown]
